FAERS Safety Report 24095294 (Version 1)
Quarter: 2024Q3

REPORT INFORMATION
  Report Type: Spontaneous
  Country: IN (occurrence: IN)
  Receive Date: 20240716
  Receipt Date: 20240716
  Transmission Date: 20241016
  Serious: Yes (Other)
  Sender: MYLAN
  Company Number: IN-MYLANLABS-2024M1064859

PATIENT
  Age: 32 Year
  Sex: Male

DRUGS (8)
  1. LINEZOLID [Suspect]
     Active Substance: LINEZOLID
     Indication: Extrapulmonary tuberculosis
     Dosage: 600 MILLIGRAM
     Route: 048
  2. LEVOFLOXACIN [Concomitant]
     Active Substance: LEVOFLOXACIN
     Indication: Extrapulmonary tuberculosis
     Dosage: 100 MILLIGRAM
     Route: 065
  3. CYCLOSERINE [Concomitant]
     Active Substance: CYCLOSERINE
     Indication: Extrapulmonary tuberculosis
     Dosage: 750 MILLIGRAM
     Route: 065
  4. PYRIDOXINE [Concomitant]
     Active Substance: PYRIDOXINE
     Indication: Extrapulmonary tuberculosis
     Dosage: 100 MILLIGRAM, QD
     Route: 065
  5. CLOFAZIMINE [Concomitant]
     Active Substance: CLOFAZIMINE
     Indication: Extrapulmonary tuberculosis
     Dosage: 100 MILLIGRAM
     Route: 065
  6. BEDAQUILINE [Concomitant]
     Active Substance: BEDAQUILINE
     Indication: Extrapulmonary tuberculosis
     Dosage: 200 MILLIGRAM, 3XW, THREE TIMES PER WEEK
     Route: 065
  7. ISONIAZID [Concomitant]
     Active Substance: ISONIAZID
     Indication: Extrapulmonary tuberculosis
     Dosage: 300 MILLIGRAM, QD
     Route: 048
  8. RIFAMPIN [Concomitant]
     Active Substance: RIFAMPIN
     Indication: Extrapulmonary tuberculosis
     Dosage: 600 MILLIGRAM, QD
     Route: 048

REACTIONS (2)
  - Optic atrophy [Recovering/Resolving]
  - Toxic optic neuropathy [Recovering/Resolving]
